FAERS Safety Report 18223133 (Version 1)
Quarter: 2020Q3

REPORT INFORMATION
  Report Type: Spontaneous
  Country: FR (occurrence: FR)
  Receive Date: 20200902
  Receipt Date: 20200902
  Transmission Date: 20201103
  Serious: Yes (Hospitalization)
  Sender: FDA-Public Use
  Company Number: FR-JNJFOC-20200835027

PATIENT
  Age: 37 Year
  Sex: Male
  Weight: 108 kg

DRUGS (1)
  1. REMICADE [Suspect]
     Active Substance: INFLIXIMAB
     Indication: CROHN^S DISEASE
     Route: 042
     Dates: start: 201909, end: 20200706

REACTIONS (1)
  - Meningitis [Recovering/Resolving]

NARRATIVE: CASE EVENT DATE: 20200707
